FAERS Safety Report 5165683-X (Version None)
Quarter: 2006Q4

REPORT INFORMATION
  Report Type: 
  Country: None (occurrence: None)
  Receive Date: 20061206
  Receipt Date: 20020117
  Transmission Date: 20070319
  Serious: Yes (Hospitalization, Other)
  Sender: FDA-Public Use
  Company Number: US-BRISTOL-MYERS SQUIBB COMPANY-11675949

PATIENT
  Age: 24 Hour
  Sex: Male

DRUGS (5)
  1. ZERIT [Suspect]
     Dosage: EXPOSURE THROUGHOUT GESTATION.
     Route: 064
     Dates: end: 19981108
  2. EPIVIR [Suspect]
     Dosage: EXPOSURE THROUGHOUT GESTATION.
     Route: 064
     Dates: end: 19981108
  3. EPIVIR [Suspect]
     Indication: PROPHYLAXIS
     Route: 048
     Dates: start: 19981108
  4. RETROVIR [Suspect]
     Dosage: EXPOSURE AT DELIVERY. 200 MG/20 ML
     Route: 064
     Dates: start: 19981108, end: 19981108
  5. RETROVIR [Suspect]
     Indication: PROPHYLAXIS
     Route: 048
     Dates: start: 19981108

REACTIONS (7)
  - ANAEMIA [None]
  - BLOOD CREATINE PHOSPHOKINASE INCREASED [None]
  - BLOOD PYRUVIC ACID INCREASED [None]
  - DRUG WITHDRAWAL SYNDROME [None]
  - HYPERTONIA [None]
  - LATE DEVELOPER [None]
  - PSYCHOMOTOR SKILLS IMPAIRED [None]
